FAERS Safety Report 4318824-8 (Version None)
Quarter: 2004Q1

REPORT INFORMATION
  Report Type: 
  Country: None (occurrence: None)
  Receive Date: 20040315
  Receipt Date: 20040302
  Transmission Date: 20041129
  Serious: Yes (Hospitalization, Other)
  Sender: FDA-Public Use
  Company Number: 2003123506

PATIENT
  Age: 79 Year
  Sex: Female
  Weight: 65.7716 kg

DRUGS (9)
  1. SINEQUAN [Suspect]
     Indication: SLEEP TERROR
     Dosage: 75 MG (DAILY), ORAL
     Route: 048
  2. DOXEPIN (DOXEPIN) [Suspect]
     Indication: SLEEP TERROR
     Dosage: 50 MG (DAILY), ORAL
     Route: 048
     Dates: start: 20030101
  3. PAROXETINE HCL [Concomitant]
  4. DYAZIDE [Concomitant]
  5. ATENOLOL [Concomitant]
  6. CELECOXIB (CELECOXIB) [Concomitant]
  7. TOLTERODINE L-TARTRATE (TOLTERODINE L-TARTRATE) [Concomitant]
  8. CONJUGATED ESTROGENS [Concomitant]
  9. BECLOMETASONE DIPROPIONATE (BECLOMETASONE DIPROPIONATE) [Concomitant]

REACTIONS (7)
  - FALL [None]
  - FEELING ABNORMAL [None]
  - INSOMNIA [None]
  - MACULAR DEGENERATION [None]
  - MEDICATION ERROR [None]
  - PHARMACEUTICAL PRODUCT COMPLAINT [None]
  - VISUAL ACUITY REDUCED [None]
